FAERS Safety Report 18079120 (Version 1)
Quarter: 2020Q3

REPORT INFORMATION
  Report Type: Spontaneous
  Country: US (occurrence: US)
  Receive Date: 20200727
  Receipt Date: 20200727
  Transmission Date: 20201103
  Serious: No
  Sender: FDA-Public Use
  Company Number: None

PATIENT
  Age: 81 Year
  Sex: Male

DRUGS (3)
  1. ALPRAZOLAM. [Concomitant]
     Active Substance: ALPRAZOLAM
  2. DEFERASIROX 180MG TEVA PHARMACEUTICALS USA [Suspect]
     Active Substance: DEFERASIROX
     Indication: TARGETED CANCER THERAPY
     Route: 048
     Dates: start: 20200301
  3. VITAMIN B12 [Concomitant]
     Active Substance: CYANOCOBALAMIN

REACTIONS (2)
  - Transfusion [None]
  - Blood sodium decreased [None]

NARRATIVE: CASE EVENT DATE: 20200724
